FAERS Safety Report 6236307-5 (Version None)
Quarter: 2009Q2

REPORT INFORMATION
  Report Type: 
  Country: None (occurrence: None)
  Receive Date: 20090619
  Receipt Date: 20030919
  Transmission Date: 20091009
  Serious: Yes (Other)
  Sender: FDA-Public Use
  Company Number: AU-ROCHE-468525

PATIENT
  Sex: Male

DRUGS (6)
  1. DACLIZUMAB [Suspect]
     Route: 042
     Dates: start: 20040516, end: 20040516
  2. DACLIZUMAB [Suspect]
     Route: 042
     Dates: start: 20040530, end: 20040712
  3. MYCOPHENOLATE MOFETIL [Suspect]
     Route: 048
     Dates: start: 20040517
  4. SIROLIMUS [Suspect]
     Route: 065
  5. PREDNISONE TAB [Suspect]
     Route: 048
     Dates: start: 20051108
  6. TACROLIMUS [Concomitant]
     Dates: start: 20060828

REACTIONS (1)
  - BASAL CELL CARCINOMA [None]
